FAERS Safety Report 19116304 (Version 1)
Quarter: 2021Q2

REPORT INFORMATION
  Report Type: Spontaneous
  Country: US (occurrence: US)
  Receive Date: 20210409
  Receipt Date: 20210409
  Transmission Date: 20210717
  Serious: Yes (Other)
  Sender: FDA-Public Use
  Company Number: US-SUN PHARMACEUTICAL INDUSTRIES LTD-2021R1-289437

PATIENT
  Age: 41 Year
  Sex: Male

DRUGS (1)
  1. IMATINIB. [Suspect]
     Active Substance: IMATINIB MESYLATE
     Indication: CHROMOPHOBE RENAL CELL CARCINOMA
     Dosage: UNK
     Route: 065
     Dates: start: 201408, end: 201501

REACTIONS (1)
  - Therapy partial responder [Unknown]
